FAERS Safety Report 17115360 (Version 2)
Quarter: 2019Q4

REPORT INFORMATION
  Report Type: Spontaneous
  Country: US (occurrence: US)
  Receive Date: 20191205
  Receipt Date: 20191219
  Transmission Date: 20200122
  Serious: Yes (Other)
  Sender: FDA-Public Use
  Company Number: US-PFIZER INC-2019520636

PATIENT
  Age: 9 Year
  Sex: Male
  Weight: 42 kg

DRUGS (1)
  1. JUNIOR STRENGTH ADVIL [Suspect]
     Active Substance: IBUPROFEN
     Indication: TOOTHACHE
     Dosage: 100 MG, UNK (ONCE)
     Route: 048

REACTIONS (4)
  - Choking [Unknown]
  - Hypoaesthesia oral [Unknown]
  - Oesophageal pain [Unknown]
  - Throat irritation [Unknown]
